FAERS Safety Report 21484337 (Version 1)
Quarter: 2022Q4

REPORT INFORMATION
  Report Type: Spontaneous
  Country: FR (occurrence: FR)
  Receive Date: 20221020
  Receipt Date: 20221020
  Transmission Date: 20230113
  Serious: Yes (Hospitalization)
  Sender: FDA-Public Use
  Company Number: None

PATIENT
  Age: 53 Year
  Sex: Female

DRUGS (1)
  1. OXALIPLATIN [Suspect]
     Active Substance: OXALIPLATIN
     Indication: Adenocarcinoma
     Dosage: 1 TREATMENT
     Dates: start: 20220801

REACTIONS (3)
  - Paralysis [Recovered/Resolved]
  - Muscular weakness [Recovered/Resolved]
  - Laryngospasm [Not Recovered/Not Resolved]

NARRATIVE: CASE EVENT DATE: 20220801
